FAERS Safety Report 5815521-4 (Version None)
Quarter: 2008Q3

REPORT INFORMATION
  Report Type: 
  Country: None (occurrence: None)
  Receive Date: 20080718
  Receipt Date: 20080709
  Transmission Date: 20090109
  Serious: Yes (Other)
  Sender: FDA-Public Use
  Company Number: ES-PFIZER INC-2008057648

PATIENT
  Age: 62 Year
  Sex: Female

DRUGS (1)
  1. LYRICA [Suspect]
     Indication: PARAESTHESIA
     Route: 048
     Dates: start: 20080516, end: 20080519

REACTIONS (1)
  - ATRIAL FIBRILLATION [None]
